FAERS Safety Report 18246481 (Version 2)
Quarter: 2021Q1

REPORT INFORMATION
  Report Type: Other
  Country: US (occurrence: US)
  Receive Date: 20200909
  Receipt Date: 20210327
  Transmission Date: 20210419
  Serious: Yes (Other)
  Sender: FDA-Public Use
  Company Number: US-ROCHE-2646239

PATIENT
  Age: 78 Year
  Sex: Female
  Weight: 64.01 kg

DRUGS (12)
  1. WARFARIN [Concomitant]
     Active Substance: WARFARIN
     Indication: THROMBOSIS
     Route: 048
     Dates: start: 2009
  2. ESBRIET [Suspect]
     Active Substance: PIRFENIDONE
     Dosage: THREE 267 MG PILLS AT BREAKFAST, LUNCH AND DINNER; ONGOING: YES
     Route: 048
     Dates: start: 202006
  3. DORZOLAMIDE [Concomitant]
     Active Substance: DORZOLAMIDE
     Indication: GLAUCOMA
     Dosage: ONE DROP IN RIGHT EYE; ONGOING:YES
     Route: 047
     Dates: start: 2016
  4. ESBRIET [Suspect]
     Active Substance: PIRFENIDONE
     Dosage: THREE 267 MG PILLS THREE TIME A DAY
     Route: 048
     Dates: start: 2020
  5. SIMVASTATIN. [Concomitant]
     Active Substance: SIMVASTATIN
     Indication: BLOOD CHOLESTEROL INCREASED
     Route: 048
     Dates: start: 2009
  6. ESBRIET [Suspect]
     Active Substance: PIRFENIDONE
     Indication: IDIOPATHIC PULMONARY FIBROSIS
     Route: 048
     Dates: start: 20200701
  7. FOSAMAX [Concomitant]
     Active Substance: ALENDRONATE SODIUM
     Indication: OSTEOPOROSIS
     Dosage: EVERY FRIDAY MORNING
     Dates: start: 2016
  8. TYLENOL [Concomitant]
     Active Substance: ACETAMINOPHEN
     Indication: ARTHRITIS
     Dosage: MORNING AND NIGHT
     Route: 048
  9. ESBRIET [Suspect]
     Active Substance: PIRFENIDONE
     Indication: IDIOPATHIC PULMONARY FIBROSIS
     Dosage: DAY 1?14 1 TABLET BY MOUTH 3 TIMES A DAY WITH MEALS, DAY 15?28 2 TABLETS BY MOUTH 3 TIMES A DAY WITH
     Route: 048
  10. ESBRIET [Suspect]
     Active Substance: PIRFENIDONE
     Route: 048
  11. ESBRIET [Suspect]
     Active Substance: PIRFENIDONE
     Dosage: 9 PILLS A DAY WITH FOOD
     Route: 048
  12. WARFARIN [Concomitant]
     Active Substance: WARFARIN
     Route: 048
     Dates: start: 2010

REACTIONS (10)
  - Vomiting [Recovered/Resolved]
  - Fall [Unknown]
  - Fatigue [Recovered/Resolved]
  - Nausea [Unknown]
  - International normalised ratio decreased [Unknown]
  - Blood disorder [Unknown]
  - Dizziness [Recovered/Resolved]
  - Nausea [Not Recovered/Not Resolved]
  - Illness [Recovered/Resolved]
  - Eye contusion [Unknown]

NARRATIVE: CASE EVENT DATE: 20200720
